FAERS Safety Report 19272149 (Version 1)
Quarter: 2021Q2

REPORT INFORMATION
  Report Type: Spontaneous
  Country: GB (occurrence: GB)
  Receive Date: 20210518
  Receipt Date: 20210518
  Transmission Date: 20210717
  Serious: Yes (Other)
  Sender: FDA-Public Use
  Company Number: GB-DEXPHARM-20210659

PATIENT
  Age: 54 Year
  Sex: Female
  Weight: 66 kg

DRUGS (17)
  1. OMEPRAZOLE. [Suspect]
     Active Substance: OMEPRAZOLE
     Dates: start: 20210426
  2. OMEPRAZOLE. [Suspect]
     Active Substance: OMEPRAZOLE
     Dates: start: 20200821, end: 20210426
  3. ZINERYT [Concomitant]
     Dosage: WHEN REQUIRED 2 SEPARATED DOSES
     Dates: start: 20200417
  4. AVEENO [Concomitant]
     Active Substance: DIMETHICONE\HOMOSALATE\OCTINOXATE\OCTISALATE\TITANIUM DIOXIDE
     Dosage: WHEN REQUIRED
     Dates: start: 20200417
  5. METRONIDAZOLE. [Concomitant]
     Active Substance: METRONIDAZOLE
     Dosage: AS REQUIRED 2 SEPARATED DOSES
     Dates: start: 20200417
  6. DOXYCYCLINE. [Concomitant]
     Active Substance: DOXYCYCLINE
     Dosage: AS DIRECTED BY HOSPITAL
     Dates: start: 20200417, end: 20210316
  7. TRAMADOL. [Concomitant]
     Active Substance: TRAMADOL
     Dosage: 2 SEPARATED DOSES
     Dates: start: 20200821
  8. AMITRIPTYLINE HYDROCHLORIDE. [Concomitant]
     Active Substance: AMITRIPTYLINE HYDROCHLORIDE
     Dosage: ONE OR TWO AT BEDTIME
     Dates: start: 20200417
  9. LANSOPRAZOLE. [Concomitant]
     Active Substance: LANSOPRAZOLE
     Dates: start: 20210426
  10. NASACORT [Concomitant]
     Active Substance: TRIAMCINOLONE ACETONIDE
     Dosage: EACH NOSTRIL AS REQUIRED
     Route: 045
     Dates: start: 20200417
  11. FEXOFENADINE [Concomitant]
     Active Substance: FEXOFENADINE HYDROCHLORIDE
     Dosage: AS REQUIRED SEASONALLY
     Dates: start: 20200417
  12. CELECOXIB. [Concomitant]
     Active Substance: CELECOXIB
     Dosage: 2 SEPARATED DOSES
     Dates: start: 20200821
  13. CITALOPRAM [Concomitant]
     Active Substance: CITALOPRAM HYDROBROMIDE
     Dates: start: 20200417
  14. GAVISCON ADVANCE [Concomitant]
     Active Substance: POTASSIUM BICARBONATE\SODIUM ALGINATE
     Dosage: FOR SIX WEEKS 4 SEPARATED DOSES
     Dates: start: 20200417
  15. LYMECYCLINE [Concomitant]
     Active Substance: LYMECYCLINE
     Dates: start: 20210316
  16. GABAPENTIN. [Concomitant]
     Active Substance: GABAPENTIN
     Dosage: TAKE 3 TO 4 3 SEPARATED DOSES
     Dates: start: 20200417
  17. OCTENISAN [Concomitant]
     Dosage: USE AS DIRECTED
     Dates: start: 20200417

REACTIONS (1)
  - Abdominal pain upper [Recovered/Resolved]

NARRATIVE: CASE EVENT DATE: 20210426
